FAERS Safety Report 4522736-4 (Version None)
Quarter: 2004Q4

REPORT INFORMATION
  Report Type: 
  Country: None (occurrence: None)
  Receive Date: 20041207
  Receipt Date: 20041202
  Transmission Date: 20050328
  Serious: Yes (Life-Threatening)
  Sender: FDA-Public Use
  Company Number: TCI2003A02066

PATIENT
  Age: 49 Year
  Sex: Female

DRUGS (6)
  1. ACTOS [Suspect]
     Indication: DIABETES MELLITUS
     Dosage: 15 MG (15 MG, 1 IN 1D), PER ORAL
     Route: 048
     Dates: start: 20030101, end: 20030425
  2. GLIMEPIRIDE [Concomitant]
  3. BUFORMIN HYDROCHLORIDE) [Concomitant]
  4. TOCOPHERYL NICOTINATE [Concomitant]
  5. ALOSENN [Concomitant]
  6. SENNA LEAF [Concomitant]

REACTIONS (3)
  - BRAIN NATRIURETIC PEPTIDE INCREASED [None]
  - CARDIAC FAILURE CONGESTIVE [None]
  - FACE OEDEMA [None]
